FAERS Safety Report 5303180-9 (Version None)
Quarter: 2007Q1

REPORT INFORMATION
  Report Type: 
  Country: None (occurrence: None)
  Receive Date: 20070201
  Receipt Date: 20061121
  Transmission Date: 20070707
  Serious: No
  Sender: FDA-Public Use
  Company Number: 2006PV025683

PATIENT
  Age: 64 Year
  Sex: Male
  Weight: 158.759 kg

DRUGS (3)
  1. BYETTA [Suspect]
     Dosage: 10 MCG;BID;SC 5 MCG;BID;SC
     Route: 058
     Dates: start: 20061019, end: 20061118
  2. BYETTA [Suspect]
     Dosage: 10 MCG;BID;SC 5 MCG;BID;SC
     Route: 058
     Dates: start: 20061118
  3. ACTOS [Concomitant]

REACTIONS (2)
  - ABDOMINAL DISTENSION [None]
  - WEIGHT DECREASED [None]
